FAERS Safety Report 5823115-X (Version None)
Quarter: 2008Q3

REPORT INFORMATION
  Report Type: 
  Country: None (occurrence: None)
  Receive Date: 20080725
  Receipt Date: 20080721
  Transmission Date: 20090109
  Serious: Yes (Other)
  Sender: FDA-Public Use
  Company Number: US-JNJFOC-20080502244

PATIENT
  Age: 68 Year
  Sex: Female
  Weight: 136.08 kg

DRUGS (5)
  1. EXTRA STRENGTH TYLENOL [Suspect]
  2. EXTRA STRENGTH TYLENOL [Suspect]
  3. EXTRA STRENGTH TYLENOL [Suspect]
     Indication: ARTHRALGIA
  4. WARFARIN SODIUM [Suspect]
  5. WARFARIN SODIUM [Suspect]
     Indication: ANTICOAGULANT THERAPY

REACTIONS (1)
  - INTERNATIONAL NORMALISED RATIO INCREASED [None]
